FAERS Safety Report 4804102-7 (Version None)
Quarter: 2005Q4

REPORT INFORMATION
  Report Type: 
  Country: None (occurrence: None)
  Receive Date: 20051014
  Receipt Date: 20051003
  Transmission Date: 20060501
  Serious: Yes (Other)
  Sender: FDA-Public Use
  Company Number: MC200500887

PATIENT
  Age: 78 Year
  Sex: Male
  Weight: 72.6 kg

DRUGS (4)
  1. ANGIOMAX [Suspect]
     Indication: ANGIOGRAM
     Dosage: 12 ML, BOLUS, IV BOLUS; SEE IMAGE
     Route: 040
     Dates: start: 20051003, end: 20051003
  2. ANGIOMAX [Suspect]
     Indication: ANGIOGRAM
     Dosage: 12 ML, BOLUS, IV BOLUS; SEE IMAGE
     Route: 040
     Dates: start: 20051003, end: 20051003
  3. ACETYLSALICYLIC ACID SRT [Concomitant]
  4. PLAVIX [Concomitant]

REACTIONS (2)
  - CARDIAC PROCEDURE COMPLICATION [None]
  - CORONARY ARTERY DISSECTION [None]
